FAERS Safety Report 11857114 (Version 3)
Quarter: 2016Q1

REPORT INFORMATION
  Report Type: Spontaneous
  Country: US (occurrence: US)
  Receive Date: 20151221
  Receipt Date: 20160114
  Transmission Date: 20160526
  Serious: No
  Sender: FDA-Public Use
  Company Number: US-PFIZER INC-2015446676

PATIENT
  Age: 59 Year
  Sex: Male
  Weight: 79 kg

DRUGS (6)
  1. CHANTIX [Suspect]
     Active Substance: VARENICLINE TARTRATE
     Indication: MUSCLE SPASMS
  2. CHANTIX [Suspect]
     Active Substance: VARENICLINE TARTRATE
     Indication: NERVE INJURY
  3. CHANTIX [Suspect]
     Active Substance: VARENICLINE TARTRATE
     Indication: OSTEOARTHRITIS
     Dosage: 0.5 MG, UNK
  4. CHANTIX [Suspect]
     Active Substance: VARENICLINE TARTRATE
     Indication: MUSCLE INJURY
  5. CHANTIX [Suspect]
     Active Substance: VARENICLINE TARTRATE
     Indication: INTERVERTEBRAL DISC DEGENERATION
  6. CHANTIX [Suspect]
     Active Substance: VARENICLINE TARTRATE
     Indication: ROUTINE HEALTH MAINTENANCE

REACTIONS (3)
  - Inappropriate schedule of drug administration [Unknown]
  - Product use issue [Unknown]
  - Decreased appetite [Unknown]
